FAERS Safety Report 9571803 (Version 1)
Quarter: 2013Q4

REPORT INFORMATION
  Report Type: Spontaneous
  Country: FR (occurrence: FR)
  Receive Date: 20131001
  Receipt Date: 20131001
  Transmission Date: 20140711
  Serious: Yes (Hospitalization)
  Sender: FDA-Public Use
  Company Number: FR-ASTRAZENECA-2013SE71588

PATIENT
  Age: 32093 Day
  Sex: Female

DRUGS (7)
  1. INEXIUM [Suspect]
     Route: 048
     Dates: start: 2010, end: 201306
  2. INEXIUM [Suspect]
     Route: 048
     Dates: start: 201306, end: 20130805
  3. MODOPAR [Concomitant]
  4. CORDARONE [Concomitant]
  5. BISOPROLOL [Concomitant]
  6. LASILIX [Concomitant]
  7. DIFFU K [Concomitant]

REACTIONS (2)
  - Inappropriate antidiuretic hormone secretion [Recovered/Resolved]
  - Hyponatraemia [Recovered/Resolved]
